FAERS Safety Report 15855658 (Version 3)
Quarter: 2019Q1

REPORT INFORMATION
  Report Type: Report from Study
  Country: US (occurrence: US)
  Receive Date: 20190122
  Receipt Date: 20190222
  Transmission Date: 20190417
  Serious: Yes (Other)
  Sender: FDA-Public Use
  Company Number: US-GILEAD-2019-0386214

PATIENT
  Age: 61 Year
  Sex: Female

DRUGS (1)
  1. AMBRISENTAN [Suspect]
     Active Substance: AMBRISENTAN
     Indication: PULMONARY ARTERIAL HYPERTENSION
     Dosage: 10 MG, QD
     Route: 065
     Dates: start: 20190118

REACTIONS (8)
  - Ill-defined disorder [Unknown]
  - Feeling abnormal [Unknown]
  - Intentional dose omission [Not Recovered/Not Resolved]
  - Weight decreased [Unknown]
  - Heart rate increased [Not Recovered/Not Resolved]
  - Terminal state [Unknown]
  - Decreased appetite [Not Recovered/Not Resolved]
  - Stress [Unknown]

NARRATIVE: CASE EVENT DATE: 20190118
